FAERS Safety Report 23878649 (Version 2)
Quarter: 2024Q3

REPORT INFORMATION
  Report Type: Spontaneous
  Country: CN (occurrence: CN)
  Receive Date: 20240521
  Receipt Date: 20240717
  Transmission Date: 20241016
  Serious: Yes (Life-Threatening)
  Sender: G1 THERAPEUTICS
  Company Number: CN-ADR-3502031025890202401807

PATIENT

DRUGS (5)
  1. TRILACICLIB [Suspect]
     Active Substance: TRILACICLIB
     Indication: Lung neoplasm
     Dosage: 360 MG, QD
     Route: 042
     Dates: start: 20240426, end: 20240426
  2. CAMRELIZUMAB [Suspect]
     Active Substance: CAMRELIZUMAB
     Indication: Lung neoplasm
     Dosage: 200 MG, QD
     Route: 042
     Dates: start: 20240426, end: 20240427
  3. PACLITAXEL [Suspect]
     Active Substance: PACLITAXEL
     Indication: Lung neoplasm
     Dosage: 400 MG, QD
     Route: 042
     Dates: start: 20240426, end: 20240426
  4. BEVACIZUMAB [Suspect]
     Active Substance: BEVACIZUMAB
     Indication: Lung neoplasm
     Dosage: 0.4 G, QD
     Route: 042
     Dates: start: 20240426, end: 20240427
  5. CISPLATIN [Suspect]
     Active Substance: CISPLATIN
     Indication: Lung neoplasm
     Dosage: 100 MG, QD
     Route: 042
     Dates: start: 20240426, end: 20240427

REACTIONS (3)
  - White blood cell count decreased [Recovering/Resolving]
  - Granulocyte count decreased [Recovering/Resolving]
  - Platelet count decreased [Recovering/Resolving]

NARRATIVE: CASE EVENT DATE: 20240504
